FAERS Safety Report 9602358 (Version 1)
Quarter: 2013Q4

REPORT INFORMATION
  Report Type: Spontaneous
  Country: US (occurrence: US)
  Receive Date: 20131007
  Receipt Date: 20131007
  Transmission Date: 20140711
  Serious: No
  Sender: FDA-Public Use
  Company Number: US-GLAXOSMITHKLINE-A1036464A

PATIENT
  Age: 59 Year
  Sex: Female

DRUGS (6)
  1. BENLYSTA [Suspect]
     Indication: SYSTEMIC LUPUS ERYTHEMATOSUS
     Route: 042
     Dates: start: 20130614
  2. ARAVA [Concomitant]
  3. LEVOTHYROXIN [Concomitant]
  4. CYMBALTA [Concomitant]
  5. PLAQUENIL [Concomitant]
  6. TRAMADOL [Concomitant]

REACTIONS (5)
  - Diarrhoea [Unknown]
  - Nausea [Unknown]
  - Pain in extremity [Unknown]
  - Diarrhoea [Unknown]
  - Nausea [Unknown]
